FAERS Safety Report 9308651 (Version 3)
Quarter: 2013Q3

REPORT INFORMATION
  Report Type: Report from Study
  Country: US (occurrence: US)
  Receive Date: 20130524
  Receipt Date: 20130903
  Transmission Date: 20140515
  Serious: Yes (Death)
  Sender: FDA-Public Use
  Company Number: US-JNJFOC-20130511252

PATIENT
  Sex: Male
  Weight: 86.18 kg

DRUGS (13)
  1. USTEKINUMAB [Suspect]
     Indication: PSORIASIS
     Route: 058
     Dates: start: 20100813, end: 20130118
  2. TOPICAL CORTICOSTEROIDS [Concomitant]
  3. OXYMORPHONE [Concomitant]
     Route: 048
     Dates: start: 20130430, end: 20130511
  4. PAROXETINE [Concomitant]
     Route: 048
     Dates: start: 20100422, end: 20130511
  5. VITAMIN D [Concomitant]
     Route: 048
     Dates: start: 20080930, end: 20130511
  6. COUMADIN [Concomitant]
     Route: 048
     Dates: start: 20111118, end: 20130511
  7. FERROUS GLUCONATE [Concomitant]
     Route: 048
     Dates: start: 20111116, end: 20130511
  8. TRIAMCINOLONE [Concomitant]
     Route: 061
     Dates: start: 20060405, end: 20130511
  9. OMEPRAZOLE [Concomitant]
     Route: 048
     Dates: start: 20111214, end: 20130511
  10. ZANAFLEX [Concomitant]
     Route: 048
     Dates: start: 20121224, end: 20130511
  11. SENOKOT [Concomitant]
     Route: 048
     Dates: start: 20111120, end: 20130511
  12. LIPITOR [Concomitant]
     Route: 048
     Dates: start: 20060331, end: 20130511
  13. LOPRESSOR [Concomitant]
     Route: 048
     Dates: start: 20060331, end: 20130511

REACTIONS (1)
  - Coronary artery disease [Fatal]
